FAERS Safety Report 4955991-7 (Version None)
Quarter: 2006Q1

REPORT INFORMATION
  Report Type: 
  Country: None (occurrence: None)
  Receive Date: 20060328
  Receipt Date: 20051104
  Transmission Date: 20060701
  Serious: Yes (Other)
  Sender: FDA-Public Use
  Company Number: US-MERCK-0511USA01178

PATIENT
  Age: 81 Year
  Sex: Female
  Weight: 66 kg

DRUGS (25)
  1. ZESTRIL [Concomitant]
     Route: 065
  2. TYLENOL (CAPLET) [Concomitant]
     Route: 065
  3. VIOXX [Suspect]
     Indication: OSTEOARTHRITIS
     Route: 048
     Dates: start: 20010201, end: 20041001
  4. VIOXX [Suspect]
     Route: 048
     Dates: start: 20010201, end: 20041001
  5. ACETAMINOPHEN [Concomitant]
     Route: 065
  6. ALEVE [Concomitant]
     Route: 065
  7. ACTOS [Concomitant]
     Route: 065
  8. AMITRIPTYLINE PAMOATE [Concomitant]
     Route: 065
  9. AMLODIPINE BESYLATE [Concomitant]
     Route: 065
  10. ASPIRIN [Concomitant]
     Route: 065
  11. DARVOCET [Concomitant]
     Route: 065
  12. ELAVIL [Concomitant]
     Route: 048
  13. ENALAPRIL MALEATE [Concomitant]
     Route: 065
  14. IMDUR [Concomitant]
     Route: 065
  15. INSULIN [Concomitant]
     Route: 065
  16. ISOSORBIDE [Concomitant]
     Route: 065
  17. LOTENSIN [Concomitant]
     Route: 065
  18. LOTREL [Concomitant]
     Route: 065
  19. METOPROLOL [Concomitant]
     Route: 065
  20. NAPROXEN [Concomitant]
     Route: 065
  21. NORVASC [Concomitant]
     Route: 065
  22. PEPCID [Concomitant]
     Route: 048
  23. PLAVIX [Concomitant]
     Route: 065
  24. TOPROL-XL [Concomitant]
     Route: 065
  25. VASOTEC RPD [Concomitant]
     Route: 065

REACTIONS (18)
  - ANXIETY [None]
  - BACTERIAL INFECTION [None]
  - CARDIAC DISORDER [None]
  - CARDIAC FAILURE CONGESTIVE [None]
  - CEREBROVASCULAR ACCIDENT [None]
  - CHEST PAIN [None]
  - CONSTIPATION [None]
  - CORONARY ARTERY DISEASE [None]
  - DRUG HYPERSENSITIVITY [None]
  - DYSPNOEA [None]
  - EATING DISORDER [None]
  - GASTRIC DISORDER [None]
  - GENERAL SYMPTOM [None]
  - HYPOKALAEMIA [None]
  - MYOCARDIAL INFARCTION [None]
  - NECK PAIN [None]
  - OEDEMA [None]
  - RHEUMATOID ARTHRITIS [None]
